FAERS Safety Report 25625164 (Version 2)
Quarter: 2025Q3

REPORT INFORMATION
  Report Type: Spontaneous
  Country: GB (occurrence: GB)
  Receive Date: 20250731
  Receipt Date: 20250805
  Transmission Date: 20251020
  Serious: Yes (Other)
  Sender: ORGANON
  Company Number: None

PATIENT
  Sex: Female

DRUGS (1)
  1. MOMETASONE FUROATE [Suspect]
     Active Substance: MOMETASONE FUROATE

REACTIONS (1)
  - Ulcer [Recovering/Resolving]
